FAERS Safety Report 4997306-4 (Version None)
Quarter: 2006Q1

REPORT INFORMATION
  Report Type: 
  Country: None (occurrence: None)
  Receive Date: 20060315
  Receipt Date: 20051227
  Transmission Date: 20060701
  Serious: Yes (Other)
  Sender: FDA-Public Use
  Company Number: 430456

PATIENT
  Age: 84 Year
  Sex: Female

DRUGS (3)
  1. BONIVA [Suspect]
     Indication: OSTEOPOROSIS
     Dosage: ORAL
     Route: 048
     Dates: start: 20051205
  2. ARIMIDEX [Concomitant]
  3. VAGIFEM [Concomitant]

REACTIONS (1)
  - DENTAL CARIES [None]
